FAERS Safety Report 14791914 (Version 1)
Quarter: 2018Q2

REPORT INFORMATION
  Report Type: Spontaneous
  Country: US (occurrence: US)
  Receive Date: 20180413
  Receipt Date: 20180413
  Transmission Date: 20180711
  Serious: Yes (Other)
  Sender: FDA-Public Use
  Company Number: None

PATIENT
  Age: 58 Year
  Sex: Female
  Weight: 54 kg

DRUGS (4)
  1. OXYCODONE ACETAMINOPHEN 5-325 TAB MFG CAMBER SUBSTITUTE FOR PERCOCET 5 [Suspect]
     Active Substance: ACETAMINOPHEN\OXYCODONE HYDROCHLORIDE
     Indication: ARTHRALGIA
     Dosage: ?          QUANTITY:120 DF DOSAGE FORM;?
     Route: 048
     Dates: start: 20180328, end: 20180403
  2. BABY ASPRIN [Concomitant]
     Active Substance: ASPIRIN
  3. SYNTHROID [Concomitant]
     Active Substance: LEVOTHYROXINE SODIUM
  4. ZOLOFT [Concomitant]
     Active Substance: SERTRALINE HYDROCHLORIDE

REACTIONS (7)
  - Asthenia [None]
  - Malaise [None]
  - Headache [None]
  - Fatigue [None]
  - Oral mucosal discolouration [None]
  - Product substitution issue [None]
  - Nausea [None]

NARRATIVE: CASE EVENT DATE: 20180409
